FAERS Safety Report 17417619 (Version 1)
Quarter: 2020Q1

REPORT INFORMATION
  Report Type: Spontaneous
  Country: US (occurrence: US)
  Receive Date: 20200214
  Receipt Date: 20200214
  Transmission Date: 20200409
  Serious: Yes (Other)
  Sender: FDA-Public Use
  Company Number: US-COVIS PHARMA B.V.-2020COV00062

PATIENT
  Sex: Female
  Weight: 52.15 kg

DRUGS (6)
  1. ALVESCO [Suspect]
     Active Substance: CICLESONIDE
     Dosage: 160 ?G, 2X/DAY
     Dates: start: 2019, end: 2019
  2. UNSPECIFIED ALLERGY SHOT [Concomitant]
     Dosage: EVERY 6 WEEKS
  3. ALVESCO [Suspect]
     Active Substance: CICLESONIDE
     Indication: ASTHMA
     Dosage: 320 ?G, 2X/DAY
     Dates: start: 20190320, end: 2019
  4. ALVESCO [Suspect]
     Active Substance: CICLESONIDE
     Dosage: 360 ?G, 2X/DAY
     Dates: start: 2019
  5. ALVESCO [Suspect]
     Active Substance: CICLESONIDE
     Dosage: 160 ?G, 3X/DAY
     Dates: start: 20190320, end: 2019
  6. UNSPECIFIED MEDICATIONS [Concomitant]
     Active Substance: UNSPECIFIED INGREDIENT

REACTIONS (1)
  - Asthma [Unknown]

NARRATIVE: CASE EVENT DATE: 2019
